FAERS Safety Report 5203138-4 (Version None)
Quarter: 2006Q4

REPORT INFORMATION
  Report Type: 
  Country: None (occurrence: None)
  Receive Date: 20061016
  Receipt Date: 20051012
  Transmission Date: 20070319
  Serious: Yes (Other)
  Sender: FDA-Public Use
  Company Number: 2005141837

PATIENT
  Age: 40 Year
  Sex: Male

DRUGS (1)
  1. NEURONTIN [Suspect]
     Indication: NEUROPATHY PERIPHERAL
     Dosage: 600 MG, ORAL
     Route: 048
     Dates: start: 19990101, end: 20020101

REACTIONS (5)
  - DIARRHOEA [None]
  - LYMPHADENOPATHY [None]
  - MELAENA [None]
  - WEIGHT DECREASED [None]
  - WEIGHT INCREASED [None]
